FAERS Safety Report 6030284-8 (Version None)
Quarter: 2008Q4

REPORT INFORMATION
  Report Type: 
  Country: None (occurrence: None)
  Receive Date: 20081222
  Receipt Date: 20081112
  Transmission Date: 20090506
  Serious: Yes (Other)
  Sender: FDA-Public Use
  Company Number: US-WYE-H06822108

PATIENT
  Age: 23 Year
  Sex: Male

DRUGS (2)
  1. PRISTIQ [Suspect]
     Indication: DEPRESSION
     Dosage: 50 MG, 1X PER 1 DAY, ORAL
     Route: 048
     Dates: start: 20081104
  2. DEPAKOTE [Concomitant]

REACTIONS (1)
  - DRUG SCREEN FALSE POSITIVE [None]
